FAERS Safety Report 8592195-3 (Version None)
Quarter: 2012Q3

REPORT INFORMATION
  Report Type: 
  Country: None (occurrence: None)
  Receive Date: 20120814
  Receipt Date: 20101108
  Transmission Date: 20120928
  Serious: Yes (Other)
  Sender: FDA-Public Use
  Company Number: CO-PFIZER INC-2012194727

PATIENT
  Age: 54 Year
  Sex: Female

DRUGS (4)
  1. ACETYLSALICYLIC ACID [Concomitant]
     Dosage: 100 MG, 1X/DAY
  2. METFORMIN [Concomitant]
     Dosage: 850 MG, 1X/DAY
  3. GLIBENCLAMIDE [Concomitant]
     Dosage: 5 MG, 4X/DAY
  4. LIPITOR [Suspect]
     Dosage: 10 MG, 1X/DAY

REACTIONS (2)
  - RENAL FAILURE CHRONIC [None]
  - PAIN IN EXTREMITY [None]
